FAERS Safety Report 24262026 (Version 3)
Quarter: 2024Q3

REPORT INFORMATION
  Report Type: Spontaneous
  Country: US (occurrence: US)
  Receive Date: 20240829
  Receipt Date: 20240930
  Transmission Date: 20241017
  Serious: Yes (Hospitalization)
  Sender: ROCHE
  Company Number: US-ROCHE-10000059911

PATIENT
  Age: 85 Year
  Sex: Male

DRUGS (1)
  1. ERIVEDGE [Suspect]
     Active Substance: VISMODEGIB
     Indication: Product used for unknown indication
     Route: 065

REACTIONS (6)
  - White blood cell count decreased [Unknown]
  - Iron deficiency [Unknown]
  - Haemoglobin decreased [Unknown]
  - Hypokalaemia [Unknown]
  - Arthritis [Unknown]
  - Infection [Unknown]
